FAERS Safety Report 22099479 (Version 3)
Quarter: 2023Q1

REPORT INFORMATION
  Report Type: Report from Study
  Country: GB (occurrence: GB)
  Receive Date: 20230315
  Receipt Date: 20230317
  Transmission Date: 20230418
  Serious: Yes (Hospitalization, Other)
  Sender: FDA-Public Use
  Company Number: GB-BRISTOL-MYERS SQUIBB COMPANY-2023-026678

PATIENT
  Age: 73 Year
  Weight: 57.6 kg

DRUGS (2)
  1. PACLITAXEL [Suspect]
     Active Substance: PACLITAXEL
     Indication: Pancreatic carcinoma
     Dosage: CYCLE 4, TOTAL DOSE PRIOR TO SAE: 2250
     Route: 042
     Dates: start: 20221012, end: 20230208
  2. GEMCITABINE [Suspect]
     Active Substance: GEMCITABINE
     Indication: Pancreatic carcinoma
     Dosage: CYCLE 4, TOTAL DOSE PRIOR TO SAE: 17670
     Route: 042
     Dates: start: 20221012, end: 20230208

REACTIONS (3)
  - Pneumonitis [Recovered/Resolved with Sequelae]
  - Pneumonia [Recovered/Resolved]
  - Rhinovirus infection [Unknown]

NARRATIVE: CASE EVENT DATE: 20230218
